FAERS Safety Report 17016854 (Version 1)
Quarter: 2019Q4

REPORT INFORMATION
  Report Type: Spontaneous
  Country: US (occurrence: US)
  Receive Date: 20191004
  Receipt Date: 20191004
  Transmission Date: 20200122
  Serious: Yes (Hospitalization)
  Sender: FDA-Public Use
  Company Number: None

PATIENT
  Age: 57 Year
  Sex: Female

DRUGS (1)
  1. IMATINIB 100MG [Suspect]
     Active Substance: IMATINIB
     Route: 048
     Dates: start: 20190615

REACTIONS (4)
  - Nausea [None]
  - Fatigue [None]
  - Bone pain [None]
  - Coronary arterial stent insertion [None]

NARRATIVE: CASE EVENT DATE: 20191003
